FAERS Safety Report 8512685-9 (Version None)
Quarter: 2012Q3

REPORT INFORMATION
  Report Type: 
  Country: None (occurrence: None)
  Receive Date: 20120716
  Receipt Date: 20120711
  Transmission Date: 20120928
  Serious: Yes (Other)
  Sender: FDA-Public Use
  Company Number: US-PFIZER INC-2012135748

PATIENT
  Sex: Female
  Weight: 59.41 kg

DRUGS (8)
  1. PRISTIQ [Suspect]
     Indication: MAJOR DEPRESSION
  2. CYMBALTA [Suspect]
     Indication: MAJOR DEPRESSION
     Dosage: UNK
     Dates: start: 20120209, end: 20120417
  3. CYMBALTA [Suspect]
     Indication: BLOOD PRESSURE
  4. PRISTIQ [Suspect]
     Indication: ANXIETY
     Dosage: 50 MG, DAILY
     Route: 048
     Dates: start: 20120417
  5. LEVOTHYROXINE [Concomitant]
     Indication: THYROID DISORDER
     Dosage: 75 MG, DAILY
  6. KLONOPIN [Concomitant]
     Indication: ANXIETY
     Dosage: UNK, AS NEEDED
  7. PRISTIQ [Suspect]
     Indication: DEPRESSION
     Dosage: 50 MG, DAILY
     Route: 048
     Dates: start: 20110101, end: 20120209
  8. AMBIEN [Concomitant]
     Indication: INSOMNIA
     Dosage: 5M OR 10 MG AS NEEDED

REACTIONS (8)
  - SUICIDAL IDEATION [None]
  - WITHDRAWAL SYNDROME [None]
  - HEADACHE [None]
  - DEPRESSION [None]
  - CONSTIPATION [None]
  - DIZZINESS [None]
  - DRUG INEFFECTIVE [None]
  - DRY MOUTH [None]
